FAERS Safety Report 10647855 (Version 1)
Quarter: 2014Q4

REPORT INFORMATION
  Report Type: Spontaneous
  Country: FR (occurrence: FR)
  Receive Date: 20141212
  Receipt Date: 20141212
  Transmission Date: 20150529
  Serious: Yes (Hospitalization)
  Sender: FDA-Public Use
  Company Number: FR-ROCHE-1501048

PATIENT
  Age: 50 Year
  Sex: Male

DRUGS (17)
  1. VALIUM [Suspect]
     Active Substance: DIAZEPAM
     Dosage: 2 TABLETS AT 8 P.M.
     Route: 048
     Dates: start: 20140802
  2. VALIUM [Suspect]
     Active Substance: DIAZEPAM
     Route: 048
     Dates: start: 20140806
  3. BUPRENORPHINE [Suspect]
     Active Substance: BUPRENORPHINE
     Indication: ALCOHOL WITHDRAWAL SYNDROME
     Route: 048
     Dates: start: 20140808, end: 20140808
  4. DEPAKINE [Concomitant]
     Active Substance: VALPROATE SODIUM
     Route: 065
  5. IMOVANE [Concomitant]
     Active Substance: ZOPICLONE
     Route: 065
     Dates: start: 20140803
  6. INEXIUM [Concomitant]
     Active Substance: ESOMEPRAZOLE
     Route: 065
  7. AUGMENTIN [Concomitant]
     Active Substance: AMOXICILLIN\CLAVULANATE POTASSIUM
     Indication: PNEUMONIA ASPIRATION
  8. VALIUM [Suspect]
     Active Substance: DIAZEPAM
     Indication: ALCOHOL WITHDRAWAL SYNDROME
     Dosage: 3 TABLETS
     Route: 048
     Dates: start: 20140801
  9. VALIUM [Suspect]
     Active Substance: DIAZEPAM
     Dosage: 1 TABLET AT 12:00, 1 TABLET AT 04:00 PM, 1 TABLET AT 06:00 PM AND 1 TABLET AT 10:00 PM.
     Route: 048
     Dates: start: 20140803
  10. VALIUM [Suspect]
     Active Substance: DIAZEPAM
     Dosage: 2 TABLETS
     Route: 048
     Dates: start: 20140808
  11. TERCIAN [Concomitant]
     Active Substance: CYAMEMAZINE
     Dosage: NEXT DOSE WAS GIVEN ON 06/AUG/2014
     Route: 065
     Dates: start: 20140805
  12. VALIUM [Suspect]
     Active Substance: DIAZEPAM
     Route: 048
     Dates: start: 20140805
  13. TERCIAN [Concomitant]
     Active Substance: CYAMEMAZINE
     Route: 065
     Dates: start: 20140806
  14. IMOVANE [Concomitant]
     Active Substance: ZOPICLONE
     Route: 065
     Dates: start: 20140805
  15. VALIUM [Suspect]
     Active Substance: DIAZEPAM
     Dosage: 7 TABLETS TOTAL
     Route: 048
     Dates: start: 20140804
  16. VALIUM [Suspect]
     Active Substance: DIAZEPAM
     Dosage: 6 TABLETS
     Route: 048
     Dates: start: 20140807
  17. IMOVANE [Concomitant]
     Active Substance: ZOPICLONE
     Dosage: LATER TAKEN ON 03/AUG/2014 AND 05/AUG/2014
     Route: 065
     Dates: start: 20140802

REACTIONS (1)
  - Coma [Recovered/Resolved]

NARRATIVE: CASE EVENT DATE: 20140808
